FAERS Safety Report 8108090 (Version 4)
Quarter: 2013Q4

REPORT INFORMATION
  Report Type: Spontaneous
  Country: US (occurrence: US)
  Receive Date: 20110826
  Receipt Date: 20131230
  Transmission Date: 20140711
  Serious: Yes (Hospitalization, Other)
  Sender: FDA-Public Use
  Company Number: US-BAYER-2011-077309

PATIENT
  Age: 30 Year
  Sex: Female
  Weight: 108.84 kg

DRUGS (6)
  1. YASMIN [Suspect]
     Dosage: UNK
     Dates: start: 201003, end: 201006
  2. DEPAKOTE [Concomitant]
     Indication: BIPOLAR DISORDER
     Dosage: 250 MG, QD
     Dates: start: 1999
  3. CELEXA [Concomitant]
     Indication: BIPOLAR DISORDER
     Dosage: 40 MG, QD
     Dates: start: 2009
  4. NAPROXEN [Concomitant]
     Dosage: 500 MG, UNK
  5. VALPROIC ACID [Concomitant]
     Dosage: 2 DF, HS
  6. RECLIPSEN [Concomitant]

REACTIONS (6)
  - Deep vein thrombosis [None]
  - Fear [None]
  - Injury [None]
  - Pain [None]
  - Bipolar disorder [None]
  - Anxiety [None]
